FAERS Safety Report 10766541 (Version 1)
Quarter: 2015Q1

REPORT INFORMATION
  Report Type: Spontaneous
  Country: US (occurrence: US)
  Receive Date: 20150205
  Receipt Date: 20150205
  Transmission Date: 20150721
  Serious: Yes (Death, Hospitalization)
  Sender: FDA-Public Use
  Company Number: US-GLAXOSMITHKLINE-US2015014160

PATIENT
  Age: 34 Year
  Sex: Female

DRUGS (1)
  1. BENLYSTA [Suspect]
     Active Substance: BELIMUMAB
     Indication: SYSTEMIC LUPUS ERYTHEMATOSUS
     Dosage: 10 MG/KG, SINGLE
     Route: 042

REACTIONS (5)
  - Coagulopathy [Fatal]
  - Diarrhoea [Unknown]
  - Infection [Unknown]
  - Cough [Unknown]
  - Pyrexia [Unknown]
